FAERS Safety Report 13897965 (Version 1)
Quarter: 2017Q3

REPORT INFORMATION
  Report Type: Spontaneous
  Country: CN (occurrence: CN)
  Receive Date: 20170823
  Receipt Date: 20170823
  Transmission Date: 20171127
  Serious: Yes (Other)
  Sender: FDA-Public Use
  Company Number: CN-BAYER-2017-160436

PATIENT
  Age: 88 Year
  Sex: Male

DRUGS (1)
  1. GLUCOBAY [Suspect]
     Active Substance: ACARBOSE
     Dosage: UNK
     Route: 048

REACTIONS (2)
  - Constipation [Recovering/Resolving]
  - Intestinal obstruction [None]
